FAERS Safety Report 10265859 (Version 1)
Quarter: 2014Q2

REPORT INFORMATION
  Report Type: Spontaneous
  Country: FR (occurrence: FR)
  Receive Date: 20140627
  Receipt Date: 20140627
  Transmission Date: 20141212
  Serious: Yes (Hospitalization)
  Sender: FDA-Public Use
  Company Number: FR-BRISTOL-MYERS SQUIBB COMPANY-21059654

PATIENT
  Age: 59 Year
  Sex: Male

DRUGS (8)
  1. LYSODREN TABS 500 MG [Suspect]
     Indication: ADRENAL GLAND CANCER METASTATIC
     Route: 048
     Dates: start: 201106
  2. ETOPOSIDE [Suspect]
     Indication: ADRENOCORTICAL CARCINOMA
     Route: 042
     Dates: start: 201312, end: 201404
  3. CARBOPLATIN [Suspect]
     Indication: ADRENOCORTICAL CARCINOMA
     Route: 042
     Dates: start: 201312, end: 201404
  4. EPREX [Concomitant]
  5. NEBIVOLOL [Concomitant]
  6. LAROXYL [Concomitant]
  7. INEGY [Concomitant]
  8. AMLOR [Concomitant]

REACTIONS (11)
  - Hallucination [Not Recovered/Not Resolved]
  - Abnormal behaviour [Not Recovered/Not Resolved]
  - Psychomotor retardation [Not Recovered/Not Resolved]
  - Apraxia [Not Recovered/Not Resolved]
  - Acalculia [Not Recovered/Not Resolved]
  - Disorientation [Not Recovered/Not Resolved]
  - Nervous system disorder [Not Recovered/Not Resolved]
  - Asthenia [Not Recovered/Not Resolved]
  - Mental impairment [Not Recovered/Not Resolved]
  - Memory impairment [Not Recovered/Not Resolved]
  - Confusional state [Not Recovered/Not Resolved]
